FAERS Safety Report 18135952 (Version 1)
Quarter: 2020Q3

REPORT INFORMATION
  Report Type: Report from Study
  Country: None (occurrence: US)
  Receive Date: 20200811
  Receipt Date: 20200811
  Transmission Date: 20201103
  Serious: Yes (Other)
  Sender: FDA-Public Use
  Company Number: US-ABBVIE-20K-163-3512854-00

PATIENT
  Sex: Male

DRUGS (1)
  1. VENCLEXTA [Suspect]
     Active Substance: VENETOCLAX
     Indication: ACUTE MYELOID LEUKAEMIA
     Route: 048
     Dates: start: 20200720, end: 2020

REACTIONS (5)
  - Skin laceration [Unknown]
  - Fall [Unknown]
  - Haemoglobin abnormal [Unknown]
  - Decreased activity [Unknown]
  - Anger [Unknown]

NARRATIVE: CASE EVENT DATE: 2020
